FAERS Safety Report 6226897-0 (Version None)
Quarter: 2009Q2

REPORT INFORMATION
  Report Type: 
  Country: None (occurrence: None)
  Receive Date: 20090610
  Receipt Date: 20090531
  Transmission Date: 20091009
  Serious: Yes (Other)
  Sender: FDA-Public Use
  Company Number: CHNY2009DE02281

PATIENT
  Sex: Female

DRUGS (2)
  1. NICOTINELL KAUGUMMI             (NICOTINE) CHEWABLE GUM [Suspect]
     Indication: SMOKING CESSATION THERAPY
     Dosage: 4 MG, 15 GUMS DAILY, CHEWED
     Route: 002
     Dates: start: 20060101
  2. NICOTINELL GUM         (NICOTINE) CHEWABLE GUM [Suspect]
     Indication: SMOKING CESSATION THERAPY
     Dosage: 2MG, 12 GUMS DAILY, CHEWED
     Route: 002

REACTIONS (6)
  - APHTHOUS STOMATITIS [None]
  - DEPRESSED MOOD [None]
  - DISTURBANCE IN ATTENTION [None]
  - DRUG DEPENDENCE [None]
  - DRUG WITHDRAWAL SYNDROME [None]
  - STOMATITIS [None]
